FAERS Safety Report 7851924-4 (Version None)
Quarter: 2011Q4

REPORT INFORMATION
  Report Type: 
  Country: None (occurrence: None)
  Receive Date: 20111026
  Receipt Date: 20111018
  Transmission Date: 20120403
  Serious: Yes (Other)
  Sender: FDA-Public Use
  Company Number: US-JNJFOC-20110801965

PATIENT
  Sex: Male

DRUGS (13)
  1. EFFEXOR XR [Concomitant]
     Indication: DEPRESSION
     Route: 048
     Dates: start: 20041001
  2. SIMVASTATIN [Concomitant]
     Indication: BLOOD CHOLESTEROL INCREASED
     Route: 048
     Dates: start: 20080121
  3. FUROSEMIDE [Concomitant]
     Indication: HYPERKALAEMIA
     Route: 048
     Dates: start: 20070815
  4. BUPROPION HCL [Concomitant]
     Indication: DEPRESSION
     Route: 048
     Dates: start: 20070918
  5. METFORMIN HCL [Concomitant]
     Indication: TYPE 2 DIABETES MELLITUS
     Route: 048
     Dates: start: 20070824
  6. STELARA [Suspect]
     Route: 058
     Dates: start: 20060406, end: 20101109
  7. LEVOTHYROXINE SODIUM [Concomitant]
     Indication: HYPOTHYROIDISM
     Route: 048
     Dates: start: 20070202
  8. ENALAPRIL MALEATE [Concomitant]
     Indication: CARDIOVASCULAR EVENT PROPHYLAXIS
     Route: 048
     Dates: start: 20020101
  9. STELARA [Suspect]
     Indication: PSORIASIS
     Route: 058
  10. GABAPENTIN [Concomitant]
     Indication: DIABETIC NEUROPATHY
     Route: 048
     Dates: start: 20060412
  11. GLIMEPIRIDE [Concomitant]
     Indication: TYPE 2 DIABETES MELLITUS
     Route: 048
     Dates: start: 20070522
  12. FOLIC ACID [Concomitant]
     Indication: MEDICAL DIET
     Route: 048
     Dates: start: 20050701
  13. ZOLOFT [Concomitant]
     Indication: DEPRESSION
     Route: 048
     Dates: start: 20050501

REACTIONS (1)
  - LUNG CANCER METASTATIC [None]
